FAERS Safety Report 9857990 (Version 1)
Quarter: 2014Q1

REPORT INFORMATION
  Report Type: Spontaneous
  Country: US (occurrence: US)
  Receive Date: 20140131
  Receipt Date: 20140131
  Transmission Date: 20141002
  Serious: Yes (Death)
  Sender: FDA-Public Use
  Company Number: PHHY2014US011470

PATIENT
  Age: 47 Year
  Sex: Male

DRUGS (9)
  1. DICLOFENAC [Suspect]
     Dosage: UNK
     Route: 048
     Dates: start: 20120117
  2. METFORMIN [Suspect]
     Dosage: UNK
     Route: 048
     Dates: start: 20131009
  3. BENAZEPRIL [Suspect]
     Route: 048
  4. ATENOLOL [Suspect]
     Dosage: UNK
     Route: 048
     Dates: start: 20121214
  5. PIOGLITAZONE [Suspect]
     Dosage: UNK
     Route: 048
     Dates: start: 20120823
  6. DIAZEPAM [Suspect]
     Dosage: UNK
     Route: 048
     Dates: start: 20090131
  7. GLYBURIDE [Suspect]
     Route: 048
     Dates: start: 20120703
  8. LEVOTHYROXINE [Suspect]
     Route: 048
  9. AMLODIPINE BESYLATE [Suspect]
     Route: 048
     Dates: start: 20120220

REACTIONS (1)
  - Completed suicide [Fatal]
